FAERS Safety Report 8320494-9 (Version None)
Quarter: 2012Q2

REPORT INFORMATION
  Report Type: 
  Country: None (occurrence: None)
  Receive Date: 20120427
  Receipt Date: 20120427
  Transmission Date: 20120825
  Serious: Yes (Life-Threatening, Hospitalization)
  Sender: FDA-Public Use
  Company Number: None

PATIENT
  Sex: Female
  Weight: 63.502 kg

DRUGS (3)
  1. CEFTRIAXONE [Suspect]
     Indication: PELVIC INFLAMMATORY DISEASE
     Dosage: 250 MG
     Route: 030
  2. CEFTRIAXONE [Concomitant]
  3. KETOROLAC TROMETHAMINE [Concomitant]
     Indication: PAIN
     Dosage: 30 MG
     Route: 040

REACTIONS (5)
  - ANAPHYLACTIC REACTION [None]
  - STRIDOR [None]
  - DIZZINESS [None]
  - RESPIRATORY DISTRESS [None]
  - COLD SWEAT [None]
